FAERS Safety Report 23778522 (Version 1)
Quarter: 2024Q2

REPORT INFORMATION
  Report Type: Spontaneous
  Country: FR (occurrence: FR)
  Receive Date: 20240424
  Receipt Date: 20240424
  Transmission Date: 20240716
  Serious: Yes (Other)
  Sender: FDA-Public Use
  Company Number: FR-REGENERON PHARMACEUTICALS, INC.-2024-061374

PATIENT
  Age: 82 Year
  Sex: Male

DRUGS (1)
  1. LIBTAYO [Suspect]
     Active Substance: CEMIPLIMAB-RWLC
     Indication: Product used for unknown indication
     Dosage: 350 MG, Q3W

REACTIONS (3)
  - Cell death [Unknown]
  - Hepatitis toxic [Unknown]
  - Transaminases increased [Unknown]

NARRATIVE: CASE EVENT DATE: 20231201
